FAERS Safety Report 18446402 (Version 1)
Quarter: 2020Q4

REPORT INFORMATION
  Report Type: Spontaneous
  Country: US (occurrence: US)
  Receive Date: 20201030
  Receipt Date: 20201030
  Transmission Date: 20210114
  Serious: Yes (Hospitalization)
  Sender: FDA-Public Use
  Company Number: US-UNICHEM PHARMACEUTICALS (USA) INC-UCM202010-001261

PATIENT
  Age: 23 Year
  Sex: Female

DRUGS (2)
  1. AMLODIPINE [Suspect]
     Active Substance: AMLODIPINE BESYLATE
     Indication: OVERDOSE
     Dosage: 60 TABLETS OF 5 MG
  2. METOPROLOL. [Suspect]
     Active Substance: METOPROLOL
     Indication: OVERDOSE
     Dosage: 60 TABLETS OF 50 MG

REACTIONS (8)
  - Somnolence [Recovering/Resolving]
  - Hypotension [Recovering/Resolving]
  - Overdose [Recovering/Resolving]
  - Hypoxia [Recovering/Resolving]
  - Multiple organ dysfunction syndrome [Recovering/Resolving]
  - Lactic acidosis [Recovered/Resolved]
  - Sinus bradycardia [Recovering/Resolving]
  - Anuria [Recovering/Resolving]
